FAERS Safety Report 7485652-4 (Version None)
Quarter: 2011Q2

REPORT INFORMATION
  Report Type: 
  Country: None (occurrence: None)
  Receive Date: 20110517
  Receipt Date: 20080509
  Transmission Date: 20111010
  Serious: Yes (Other)
  Sender: FDA-Public Use
  Company Number: US-BAYER-2011-006589

PATIENT
  Age: 56 Year
  Sex: Male

DRUGS (1)
  1. TRASYLOL [Suspect]
     Indication: CORONARY ARTERY BYPASS
     Dosage: UNK
     Dates: start: 20040801

REACTIONS (5)
  - INJURY [None]
  - EMOTIONAL DISTRESS [None]
  - RENAL FAILURE ACUTE [None]
  - RENAL INJURY [None]
  - PAIN [None]
